FAERS Safety Report 8041578-9 (Version None)
Quarter: 2012Q1

REPORT INFORMATION
  Report Type: 
  Country: None (occurrence: None)
  Receive Date: 20120112
  Receipt Date: 20120109
  Transmission Date: 20120608
  Serious: Yes (Death, Life-Threatening, Hospitalization, Other)
  Sender: FDA-Public Use
  Company Number: GB-PFIZER INC-2011186972

PATIENT
  Age: 80 Year
  Sex: Female
  Weight: 94 kg

DRUGS (11)
  1. ALLOPURINOL [Concomitant]
     Indication: GOUT
     Dosage: 200 MG, DAILY
     Route: 048
     Dates: start: 20090223
  2. SIMVASTATIN [Concomitant]
     Indication: HYPERCHOLESTEROLAEMIA
     Dosage: 40 MG, DAILY
     Route: 048
     Dates: start: 20080206
  3. HYDROCORTISONE [Concomitant]
     Indication: BLOOD CORTICOTROPHIN DECREASED
     Dosage: 30 MG, DAILY
     Route: 048
     Dates: start: 19760107
  4. ZOPICLONE [Concomitant]
     Indication: SLEEP DISORDER
     Dosage: 7.5 MG, DAILY
     Route: 048
     Dates: start: 20090223
  5. LISINOPRIL [Concomitant]
     Indication: ESSENTIAL HYPERTENSION
     Dosage: 20 MG, DAILY
     Route: 048
     Dates: start: 20080601
  6. LEVOTHYROXINE SODIUM [Concomitant]
     Indication: PRIMARY HYPOTHYROIDISM
  7. SOMATROPIN [Suspect]
     Indication: GROWTH HORMONE DEFICIENCY
     Dosage: 0.5 MG, 1X/DAY
     Dates: start: 20020416, end: 20110709
  8. DIGOXIN [Concomitant]
     Indication: CARDIAC FAILURE
     Dosage: 187.5 MG, DAILY
     Route: 048
     Dates: start: 20080207
  9. LYPRINOL [Concomitant]
     Indication: OSTEOPOROSIS
     Dosage: 25 MG, DAILY
     Route: 048
     Dates: start: 20040315
  10. FOSAMAX [Concomitant]
     Indication: OSTEOPOROSIS
     Dosage: 70 MG, DAILY
     Dates: start: 20020819
  11. LEVOTHYROXINE SODIUM [Concomitant]
     Indication: BLOOD THYROID STIMULATING HORMONE DECREASED
     Dosage: 150 UG, DAILY
     Route: 048
     Dates: start: 19990101

REACTIONS (3)
  - RESPIRATORY FAILURE [None]
  - PULMONARY OEDEMA [None]
  - ATRIAL FIBRILLATION [None]
